FAERS Safety Report 11237979 (Version 2)
Quarter: 2019Q2

REPORT INFORMATION
  Report Type: Spontaneous
  Country: US (occurrence: US)
  Receive Date: 20150703
  Receipt Date: 20190405
  Transmission Date: 20190711
  Serious: Yes (Death, Hospitalization, Other)
  Sender: FDA-Public Use
  Company Number: US-ASTRAZENECA-2015SE63426

PATIENT
  Age: 26764 Day
  Sex: Male
  Weight: 81.3 kg

DRUGS (10)
  1. TIMOLOL. [Concomitant]
     Active Substance: TIMOLOL
  2. AMBIEN [Concomitant]
     Active Substance: ZOLPIDEM TARTRATE
  3. CREON [Concomitant]
     Active Substance: PANCRELIPASE AMYLASE\PANCRELIPASE LIPASE\PANCRELIPASE PROTEASE
  4. LANTUS [Concomitant]
     Active Substance: INSULIN GLARGINE
  5. ENALAPRIL [Concomitant]
     Active Substance: ENALAPRIL
  6. GLIMEPIRIDE. [Concomitant]
     Active Substance: GLIMEPIRIDE
  7. BYETTA [Suspect]
     Active Substance: EXENATIDE
     Route: 065
     Dates: start: 200608, end: 201108
  8. ASACOL [Concomitant]
     Active Substance: MESALAMINE
  9. BYETTA [Suspect]
     Active Substance: EXENATIDE
     Route: 065
     Dates: start: 20070508, end: 201109
  10. DICYCLOMINE [Concomitant]
     Active Substance: DICYCLOMINE HYDROCHLORIDE

REACTIONS (2)
  - Pancreatic carcinoma [Fatal]
  - Adenocarcinoma pancreas [Unknown]

NARRATIVE: CASE EVENT DATE: 20120712
